FAERS Safety Report 10667033 (Version 1)
Quarter: 2014Q4

REPORT INFORMATION
  Report Type: Spontaneous
  Country: US (occurrence: US)
  Receive Date: 20141222
  Receipt Date: 20141222
  Transmission Date: 20150529
  Serious: No
  Sender: FDA-Public Use
  Company Number: US-BIOGENIDEC-2014BI134589

PATIENT
  Sex: Female

DRUGS (2)
  1. TECFIDERA [Suspect]
     Active Substance: DIMETHYL FUMARATE
     Indication: RELAPSING-REMITTING MULTIPLE SCLEROSIS
     Route: 048
     Dates: start: 2013
  2. AMPYRA [Concomitant]
     Active Substance: DALFAMPRIDINE
     Dates: start: 2014

REACTIONS (4)
  - Joint injury [Recovered/Resolved]
  - Fall [Recovered/Resolved]
  - Limb injury [Unknown]
  - General symptom [Not Recovered/Not Resolved]
